FAERS Safety Report 12488116 (Version 3)
Quarter: 2016Q3

REPORT INFORMATION
  Report Type: Spontaneous
  Country: US (occurrence: US)
  Receive Date: 20160622
  Receipt Date: 20160819
  Transmission Date: 20161109
  Serious: Yes (Hospitalization, Other)
  Sender: FDA-Public Use
  Company Number: US-PFIZER INC-2016247802

PATIENT
  Age: 82 Year
  Sex: Female
  Weight: 56.25 kg

DRUGS (15)
  1. SUTENT [Suspect]
     Active Substance: SUNITINIB MALATE
     Dosage: 50 MG, CYCLIC, (1/DAY ON 28 DAYS, OFF 14 DAYS)
     Route: 048
     Dates: start: 20160519, end: 20160609
  2. SUTENT [Suspect]
     Active Substance: SUNITINIB MALATE
     Dosage: 50 MG, CYCLIC (DAILY)
     Route: 048
     Dates: start: 20160501, end: 20160510
  3. NYSTATIN. [Concomitant]
     Active Substance: NYSTATIN
     Dosage: 5 ML, 4X/DAY (100000 UNITS/ML)
     Route: 048
  4. ACETAMINOPHEN. [Concomitant]
     Active Substance: ACETAMINOPHEN
     Dosage: 650 MG, AS NEEDED (EVERY 6 HOURS)
     Route: 048
  5. ACIDOPHILUS [Concomitant]
     Active Substance: LACTOBACILLUS ACIDOPHILUS
     Dosage: UNK
  6. DOCUSATE SODIUM. [Concomitant]
     Active Substance: DOCUSATE SODIUM
     Dosage: 100 MG, AS NEEDED (EVERY DAY AT BEDTIME)
     Route: 048
  7. OMEPRAZOLE. [Concomitant]
     Active Substance: OMEPRAZOLE
     Dosage: 40 MG, DAILY (BEFORE MEAL)
     Route: 048
  8. VITAMIN C [Concomitant]
     Active Substance: ASCORBIC ACID
     Dosage: 500 MG, UNK
     Dates: end: 20160726
  9. PEPCID [Concomitant]
     Active Substance: FAMOTIDINE
     Dosage: 20 MG, 2X/DAY
     Route: 048
     Dates: end: 20160726
  10. MELATONIN [Concomitant]
     Active Substance: MELATONIN
     Dosage: 3 MG, UNK
  11. ONDANSETRON HYDROCHLORIDE. [Concomitant]
     Active Substance: ONDANSETRON HYDROCHLORIDE
     Indication: NAUSEA
     Dosage: 4 MG, AS NEEDED (EVERY 8 HOURS)
     Route: 048
  12. SUTENT [Suspect]
     Active Substance: SUNITINIB MALATE
     Indication: GASTROINTESTINAL STROMAL TUMOUR
     Dosage: 50 MG, CYCLIC (ONE DAILY FOR 4 WEEKS, FOLLOWED BY TWO WEEKS OFF)
     Dates: start: 20160506, end: 20160509
  13. THERA-M [Concomitant]
     Dosage: UNK
  14. MIRALAX [Concomitant]
     Active Substance: POLYETHYLENE GLYCOL 3350
     Dosage: 17 GRAM/DOSE, DAILY (MIXED WITH 8 OZ. WATER, JUICE, SODA, COFFEE OR TEA)
     Route: 048
  15. SUTENT [Suspect]
     Active Substance: SUNITINIB MALATE
     Dosage: 50 MG, CYCLIC (DAILY)
     Route: 048
     Dates: start: 20160521, end: 20160609

REACTIONS (26)
  - Peritonitis [Unknown]
  - Gastrooesophageal reflux disease [Unknown]
  - Blood alkaline phosphatase increased [Unknown]
  - Parametritis [Unknown]
  - Ascites [Unknown]
  - Appendicitis [Unknown]
  - Vision blurred [Not Recovered/Not Resolved]
  - Abdominal distension [Unknown]
  - Oedema peripheral [Unknown]
  - Thrombocytopenia [Recovering/Resolving]
  - Leukopenia [Recovering/Resolving]
  - Intestinal perforation [Recovering/Resolving]
  - Abdominal abscess [Unknown]
  - Nausea [Not Recovered/Not Resolved]
  - Electrolyte depletion [Unknown]
  - Blood sodium decreased [Unknown]
  - Alanine aminotransferase increased [Unknown]
  - Aspartate aminotransferase increased [Unknown]
  - Fatigue [Not Recovered/Not Resolved]
  - Platelet count decreased [Unknown]
  - Vomiting [Unknown]
  - Hyponatraemia [Unknown]
  - Disease progression [Recovering/Resolving]
  - White blood cell count decreased [Unknown]
  - Abdominal pain [Unknown]
  - Gastrointestinal stromal tumour [Recovering/Resolving]

NARRATIVE: CASE EVENT DATE: 201605
